FAERS Safety Report 9680770 (Version 1)
Quarter: 2013Q4

REPORT INFORMATION
  Report Type: Spontaneous
  Country: US (occurrence: None)
  Receive Date: 20131108
  Receipt Date: 20131108
  Transmission Date: 20140711
  Serious: No
  Sender: FDA-Public Use
  Company Number: None

PATIENT
  Age: 27 Year
  Sex: Male

DRUGS (1)
  1. CHLORAPREP [Suspect]

REACTIONS (3)
  - Scratch [None]
  - Application site reaction [None]
  - Application site haemorrhage [None]
